FAERS Safety Report 6169035-5 (Version None)
Quarter: 2009Q2

REPORT INFORMATION
  Report Type: 
  Country: None (occurrence: None)
  Receive Date: 20090427
  Receipt Date: 20090414
  Transmission Date: 20091009
  Serious: Yes (Other)
  Sender: FDA-Public Use
  Company Number: KR-CELGENEUS-090-CCAZA-09041907

PATIENT

DRUGS (1)
  1. AZACITIDINE ORAL #5 [Suspect]
     Dosage: 50-75MG/M2
     Route: 065

REACTIONS (3)
  - CHRONIC GRAFT VERSUS HOST DISEASE [None]
  - FEBRILE NEUTROPENIA [None]
  - PANCYTOPENIA [None]
